FAERS Safety Report 5704833-0 (Version None)
Quarter: 2008Q2

REPORT INFORMATION
  Report Type: 
  Country: None (occurrence: None)
  Receive Date: 20080414
  Receipt Date: 20080402
  Transmission Date: 20081010
  Serious: Yes (Disabling)
  Sender: FDA-Public Use
  Company Number: CH-PFIZER INC-2008028853

PATIENT
  Sex: Female

DRUGS (6)
  1. ZYVOXID TABLET [Suspect]
     Indication: BRONCHOPNEUMONIA
     Route: 048
     Dates: start: 20080201, end: 20080303
  2. TIENAM [Concomitant]
     Route: 042
  3. ASPIRIN [Concomitant]
     Route: 048
  4. BISOPROLOL FUMARATE [Concomitant]
     Route: 048
  5. NEXIUM [Concomitant]
     Route: 048
  6. TORSEMIDE [Concomitant]
     Route: 048

REACTIONS (2)
  - COGNITIVE DISORDER [None]
  - MIOSIS [None]
